FAERS Safety Report 4696150-5 (Version None)
Quarter: 2005Q2

REPORT INFORMATION
  Report Type: 
  Country: None (occurrence: None)
  Receive Date: 20050620
  Receipt Date: 20050608
  Transmission Date: 20051028
  Serious: Yes (Hospitalization, Other)
  Sender: FDA-Public Use
  Company Number: DEU-2005-0001322

PATIENT
  Age: 37 Year
  Sex: Female
  Weight: 70 kg

DRUGS (7)
  1. OXYCODONE HCL [Suspect]
     Indication: NEUROPATHIC PAIN
     Dosage: 40 MG, TID, ORAL
     Route: 048
  2. OXYGESIC 80 MG (OXYCODONE HYDROCHLORIDE ) CR TABLET [Suspect]
     Indication: NEUROPATHIC PAIN
     Dosage: 560 , ORAL
     Route: 048
  3. EUPHYLONG (THEOPHYLLINE) CR CAPSULE [Suspect]
     Dosage: 250 MG, BID, ORAL
     Route: 048
  4. NEURONTIN 9GABAPENTIN) [Concomitant]
  5. TREVILOR  (VENLAFAXINE HYDROCHLORIDE) [Concomitant]
  6. INSULIN [Concomitant]
  7. FUROSEMIDE [Concomitant]

REACTIONS (6)
  - CEREBRAL VENTRICLE DILATATION [None]
  - CSF PRESSURE INCREASED [None]
  - FATIGUE [None]
  - HYDROCEPHALUS [None]
  - HYPERSOMNIA [None]
  - SLEEP ATTACKS [None]
